FAERS Safety Report 7679996-0 (Version None)
Quarter: 2011Q3

REPORT INFORMATION
  Report Type: 
  Country: None (occurrence: None)
  Receive Date: 20110812
  Receipt Date: 20110805
  Transmission Date: 20111222
  Serious: Yes (Other)
  Sender: FDA-Public Use
  Company Number: -CUBIST-2011S1000518

PATIENT

DRUGS (2)
  1. CUBICIN [Suspect]
     Indication: BACTERAEMIA
     Dosage: DOSE UNIT:U UNKNOWN
     Route: 065
  2. CUBICIN [Suspect]
     Indication: STAPHYLOCOCCAL INFECTION
     Dosage: DOSE UNIT:U UNKNOWN
     Route: 065

REACTIONS (1)
  - SEPTIC EMBOLUS [None]
